FAERS Safety Report 20790146 (Version 2)
Quarter: 2022Q3

REPORT INFORMATION
  Report Type: Report from Study
  Country: DE (occurrence: DE)
  Receive Date: 20220505
  Receipt Date: 20220907
  Transmission Date: 20221027
  Serious: Yes (Other)
  Sender: FDA-Public Use
  Company Number: DE-TAKEDA-DE201945798

PATIENT
  Age: 87 Year
  Sex: Female

DRUGS (40)
  1. TEDUGLUTIDE [Suspect]
     Active Substance: TEDUGLUTIDE
     Indication: Short-bowel syndrome
     Dosage: 2.8 MILLIGRAM, QD
     Route: 042
     Dates: start: 20150309, end: 20220831
  2. TEDUGLUTIDE [Suspect]
     Active Substance: TEDUGLUTIDE
     Indication: Short-bowel syndrome
     Dosage: 2.8 MILLIGRAM, QD
     Route: 042
     Dates: start: 20150309, end: 20220831
  3. TEDUGLUTIDE [Suspect]
     Active Substance: TEDUGLUTIDE
     Indication: Short-bowel syndrome
     Dosage: 2.8 MILLIGRAM, QD
     Route: 042
     Dates: start: 20150309, end: 20220831
  4. TEDUGLUTIDE [Suspect]
     Active Substance: TEDUGLUTIDE
     Indication: Short-bowel syndrome
     Dosage: 2.8 MILLIGRAM, QD
     Route: 042
     Dates: start: 20150309, end: 20220831
  5. TEDUGLUTIDE [Suspect]
     Active Substance: TEDUGLUTIDE
     Dosage: 2.4 MILLIGRAM, QD
     Route: 042
     Dates: start: 20220901
  6. TEDUGLUTIDE [Suspect]
     Active Substance: TEDUGLUTIDE
     Dosage: 2.4 MILLIGRAM, QD
     Route: 042
     Dates: start: 20220901
  7. TEDUGLUTIDE [Suspect]
     Active Substance: TEDUGLUTIDE
     Dosage: 2.4 MILLIGRAM, QD
     Route: 042
     Dates: start: 20220901
  8. TEDUGLUTIDE [Suspect]
     Active Substance: TEDUGLUTIDE
     Dosage: 2.4 MILLIGRAM, QD
     Route: 042
     Dates: start: 20220901
  9. METAMIZOLE [Concomitant]
     Active Substance: METAMIZOLE
     Indication: Pain
     Dosage: 30 GTT DROPS
     Route: 048
  10. SPIRONOLACTONE [Concomitant]
     Active Substance: SPIRONOLACTONE
     Indication: Hypokalaemia
     Dosage: 50 MILLIGRAM
     Route: 048
     Dates: start: 201709, end: 201906
  11. SPIRONOLACTONE [Concomitant]
     Active Substance: SPIRONOLACTONE
     Dosage: 50 MILLIGRAM, QD
     Route: 048
     Dates: start: 20151021, end: 201708
  12. SPIRONOLACTONE [Concomitant]
     Active Substance: SPIRONOLACTONE
     Dosage: 50 MILLIGRAM, QD
     Route: 048
     Dates: start: 2019
  13. VITAMIN B12 [Concomitant]
     Active Substance: CYANOCOBALAMIN
     Indication: Vitamin B12 deficiency
     Dosage: 1 MILLIGRAM
     Route: 030
  14. MAGNESIUM [Concomitant]
     Active Substance: MAGNESIUM
     Indication: Magnesium deficiency
     Dosage: 300 MILLIGRAM, QD
     Route: 048
     Dates: start: 201501
  15. MAGNESIUM [Concomitant]
     Active Substance: MAGNESIUM
     Indication: Supplementation therapy
     Dosage: 300 MILLIGRAM, QD
     Route: 048
  16. AMLODIPINE BESYLATE [Concomitant]
     Active Substance: AMLODIPINE BESYLATE
     Indication: Hypertension
     Dosage: 10 MILLIGRAM, QD
     Route: 048
     Dates: start: 201502, end: 2015
  17. AMLODIPINE BESYLATE [Concomitant]
     Active Substance: AMLODIPINE BESYLATE
     Dosage: 5 MILLIGRAM, BID
     Dates: start: 2015, end: 2017
  18. AMLODIPINE BESYLATE [Concomitant]
     Active Substance: AMLODIPINE BESYLATE
     Dosage: 5 MILLIGRAM, QD
     Route: 048
     Dates: start: 201709
  19. BISOPROLOL [Concomitant]
     Active Substance: BISOPROLOL
     Indication: Hypertension
     Dosage: 1.25 MILLIGRAM, QD
     Route: 048
     Dates: start: 201111, end: 2014
  20. BISOPROLOL [Concomitant]
     Active Substance: BISOPROLOL
     Dosage: 2.5 MILLIGRAM, QD
     Route: 048
     Dates: start: 201501
  21. PANTOPRAZOLE [Concomitant]
     Active Substance: PANTOPRAZOLE
     Indication: Hyperchlorhydria
     Dosage: 20 MILLIGRAM, QD
     Route: 048
     Dates: start: 2015
  22. LOPERAMIDE [Concomitant]
     Active Substance: LOPERAMIDE
     Indication: Diarrhoea
     Dosage: 2 MILLIGRAM, QID
     Route: 048
     Dates: start: 201412, end: 2017
  23. LOPERAMIDE [Concomitant]
     Active Substance: LOPERAMIDE
     Indication: Bowel movement irregularity
     Dosage: 2 MILLIGRAM, QD
     Route: 048
     Dates: start: 2017
  24. LOPERAMIDE [Concomitant]
     Active Substance: LOPERAMIDE
     Dosage: 2 MILLIGRAM, QID
     Route: 048
  25. CHOLECALCIFEROL [Concomitant]
     Active Substance: CHOLECALCIFEROL
     Indication: Supplementation therapy
     Dosage: UNK UNK, QD
     Route: 048
     Dates: start: 201202
  26. CHOLECALCIFEROL [Concomitant]
     Active Substance: CHOLECALCIFEROL
     Indication: Vitamin D deficiency
     Dosage: UNK UNK, QD
     Route: 048
     Dates: start: 201903
  27. CHOLECALCIFEROL [Concomitant]
     Active Substance: CHOLECALCIFEROL
     Dosage: UNK UNK, QD
     Route: 048
  28. MARCUMAR [Concomitant]
     Active Substance: PHENPROCOUMON
     Indication: Anticoagulation drug level
     Dosage: 300 MILLIGRAM, QD
     Route: 048
     Dates: start: 201501
  29. RAMIPRIL [Concomitant]
     Active Substance: RAMIPRIL
     Indication: Hypertension
     Dosage: 5 MILLIGRAM, QD
     Route: 048
     Dates: start: 201504, end: 201505
  30. RAMIPRIL [Concomitant]
     Active Substance: RAMIPRIL
     Dosage: 5 MILLIGRAM, BID
     Route: 048
     Dates: start: 201505
  31. NITROGLYCERIN [Concomitant]
     Active Substance: NITROGLYCERIN
     Indication: Hypertension
     Dosage: UNK
     Route: 060
     Dates: start: 2015
  32. TORSEMIDE [Concomitant]
     Active Substance: TORSEMIDE
     Indication: Oedema
     Dosage: 5 MILLIGRAM, QD
     Route: 048
     Dates: start: 20150423, end: 201505
  33. TORSEMIDE [Concomitant]
     Active Substance: TORSEMIDE
     Indication: Dyspnoea exertional
     Dosage: 10 MILLIGRAM, QD
     Route: 048
     Dates: start: 201505, end: 2015
  34. Unacid [Concomitant]
     Indication: Infection
     Dosage: 3 GRAM, TID
     Route: 042
     Dates: start: 20170731, end: 20170808
  35. Unacid [Concomitant]
     Indication: Hydronephrosis
     Dosage: 750 GRAM, BID
     Route: 048
     Dates: start: 20170808, end: 20170815
  36. Unacid [Concomitant]
     Dosage: UNK
     Route: 065
     Dates: start: 201108, end: 201108
  37. DIETARY SUPPLEMENT\UBIDECARENONE [Concomitant]
     Active Substance: DIETARY SUPPLEMENT\UBIDECARENONE
     Indication: Supplementation therapy
     Dosage: UNK UNK, QOD
     Route: 048
  38. Selenase [Concomitant]
     Indication: Selenium deficiency
     Dosage: 100 MICROGRAM, QD
     Route: 048
  39. MAGNO SANOL UNO [Concomitant]
     Indication: Magnesium deficiency
     Dosage: 150 MILLIGRAM, TID
     Route: 048
  40. CALCIUM CARBONATE [Concomitant]
     Active Substance: CALCIUM CARBONATE
     Indication: Calcium deficiency
     Dosage: 2500 MILLIGRAM, QD
     Route: 048
     Dates: start: 201903

REACTIONS (2)
  - Hyperkalaemia [Recovered/Resolved]
  - Gastritis [Not Recovered/Not Resolved]

NARRATIVE: CASE EVENT DATE: 20190601
